FAERS Safety Report 21246209 (Version 2)
Quarter: 2022Q3

REPORT INFORMATION
  Report Type: Report from Study
  Country: MX (occurrence: MX)
  Receive Date: 20220824
  Receipt Date: 20220920
  Transmission Date: 20221026
  Serious: Yes (Other)
  Sender: FDA-Public Use
  Company Number: MX-BAYER-2022A115985

PATIENT
  Sex: Male

DRUGS (4)
  1. EYLEA [Suspect]
     Active Substance: AFLIBERCEPT
     Indication: Diabetic retinal oedema
     Dosage: STRENGTH: 40 MG/ML; UNK, 1ST ADMINISTRATION IN BOTH EYES; SOLUTION FOR INJECTION
     Dates: start: 20220812
  2. INSULIN NOS [Concomitant]
     Active Substance: INSULIN NOS
     Indication: Diabetes mellitus inadequate control
     Dosage: UNK
     Dates: start: 2007
  3. METFORMIN [Concomitant]
     Active Substance: METFORMIN HYDROCHLORIDE
     Indication: Diabetes mellitus inadequate control
     Dosage: UNK
     Dates: start: 2007
  4. LINAGLIPTIN [Concomitant]
     Active Substance: LINAGLIPTIN
     Indication: Diabetes mellitus inadequate control
     Dosage: UNK
     Dates: start: 2007

REACTIONS (10)
  - Eye haemorrhage [Recovered/Resolved with Sequelae]
  - Visual impairment [Recovered/Resolved with Sequelae]
  - Photopsia [Not Recovered/Not Resolved]
  - Visual impairment [Recovering/Resolving]
  - Diplopia [Not Recovered/Not Resolved]
  - Erythropsia [Recovering/Resolving]
  - Visual field defect [Recovering/Resolving]
  - Visual impairment [Not Recovered/Not Resolved]
  - Vision blurred [Not Recovered/Not Resolved]
  - Vision blurred [Recovering/Resolving]

NARRATIVE: CASE EVENT DATE: 20220813
